FAERS Safety Report 5102810-4 (Version None)
Quarter: 2006Q3

REPORT INFORMATION
  Report Type: 
  Country: None (occurrence: None)
  Receive Date: 20060907
  Receipt Date: 20060824
  Transmission Date: 20061208
  Serious: Yes (Other)
  Sender: FDA-Public Use
  Company Number: 2006-BP-09922RO

PATIENT
  Age: 21 Year
  Sex: Male
  Weight: 80 kg

DRUGS (1)
  1. DIGOXIN [Suspect]
     Indication: SPINAL ANAESTHESIA
     Dosage: 0.5 MG X 1 (ADMIN IT IN ERROR) (0.5 MG), IT
     Route: 037

REACTIONS (9)
  - ABDOMINAL DISTENSION [None]
  - AGITATION [None]
  - AREFLEXIA [None]
  - DIPLEGIA [None]
  - HYPERTENSION [None]
  - PARAESTHESIA [None]
  - TACHYCARDIA [None]
  - URINARY RETENTION [None]
  - WRONG DRUG ADMINISTERED [None]
